FAERS Safety Report 9564871 (Version 9)
Quarter: 2017Q2

REPORT INFORMATION
  Report Type: Report from Study
  Country: CA (occurrence: CA)
  Receive Date: 20130930
  Receipt Date: 20170630
  Transmission Date: 20170830
  Serious: Yes (Other)
  Sender: FDA-Public Use
  Company Number: PHHY2013CA105204

PATIENT
  Age: 64 Year
  Sex: Male

DRUGS (2)
  1. GLEEVEC [Suspect]
     Active Substance: IMATINIB MESYLATE
     Indication: CHRONIC MYELOID LEUKAEMIA
     Dosage: 400 MG, DAILY
     Route: 048
     Dates: start: 200703
  2. GLEEVEC [Suspect]
     Active Substance: IMATINIB MESYLATE
     Dosage: 400 MG, DAILY
     Route: 048

REACTIONS (16)
  - Second primary malignancy [Unknown]
  - Lymphoma [Unknown]
  - Sexual dysfunction [Unknown]
  - Bone pain [Unknown]
  - Arthritis [Unknown]
  - Malignant neoplasm progression [Unknown]
  - Renal lymphocele [Unknown]
  - Lymphadenopathy [Unknown]
  - Vitamin D decreased [Unknown]
  - White blood cell count increased [Unknown]
  - Prostate cancer [Unknown]
  - Chronic myeloid leukaemia [Unknown]
  - Renal cyst [Unknown]
  - Pallor [Unknown]
  - Renal disorder [Unknown]
  - Myalgia [Recovering/Resolving]

NARRATIVE: CASE EVENT DATE: 20140218
